FAERS Safety Report 12859342 (Version 1)
Quarter: 2016Q4

REPORT INFORMATION
  Report Type: Spontaneous
  Country: GB (occurrence: GB)
  Receive Date: 20161018
  Receipt Date: 20161018
  Transmission Date: 20170207
  Serious: Yes (Other)
  Sender: FDA-Public Use
  Company Number: GB-PFIZER INC-2007027791

PATIENT
  Age: 18 Year
  Sex: Female

DRUGS (1)
  1. METHOTREXATE (METHOTREXATE SODIUM) [Suspect]
     Active Substance: METHOTREXATE SODIUM
     Dosage: 20MG WEEKLY (8 X 2.5MG TABLETS)
     Route: 048

REACTIONS (2)
  - Vomiting [Unknown]
  - Mental disorder [Unknown]
